FAERS Safety Report 6095831-9 (Version None)
Quarter: 2009Q1

REPORT INFORMATION
  Report Type: 
  Country: None (occurrence: None)
  Receive Date: 20090227
  Receipt Date: 20080624
  Transmission Date: 20090719
  Serious: No
  Sender: FDA-Public Use
  Company Number: A0734545A

PATIENT
  Age: 57 Year
  Sex: Female

DRUGS (2)
  1. LAMICTAL [Suspect]
     Indication: DEPRESSION
     Route: 048
     Dates: start: 20080610
  2. NO CONCURRENT MEDICATION [Concomitant]

REACTIONS (4)
  - ANXIETY [None]
  - CRYING [None]
  - DEPRESSION [None]
  - RASH [None]
